FAERS Safety Report 7596773-X (Version None)
Quarter: 2011Q3

REPORT INFORMATION
  Report Type: 
  Country: None (occurrence: None)
  Receive Date: 20110708
  Receipt Date: 20110630
  Transmission Date: 20111222
  Serious: No
  Sender: FDA-Public Use
  Company Number: US-PFIZER INC-2011145858

PATIENT
  Sex: Female
  Weight: 73.469 kg

DRUGS (4)
  1. AMLODIPINE BESYLATE [Suspect]
     Indication: BLOOD PRESSURE ABNORMAL
     Dosage: 5 MG, 1X/DAY
     Route: 048
     Dates: end: 20110622
  2. LEVOTHYROXINE [Concomitant]
     Indication: THYROID DISORDER
     Dosage: 100 MG, DAILY
  3. VACCINE /PERTUSSIS/TETANUS/DIPHTHERIA/ ^CNG^ [Concomitant]
     Dosage: 1 DF, UNK
     Dates: start: 20110623, end: 20110623
  4. AMLODIPINE BESYLATE [Suspect]
     Dosage: 10 MG, DAILY
     Dates: start: 20110623, end: 20110629

REACTIONS (4)
  - OEDEMA [None]
  - FLUSHING [None]
  - FATIGUE [None]
  - HEART RATE IRREGULAR [None]
